FAERS Safety Report 20562839 (Version 1)
Quarter: 2022Q1

REPORT INFORMATION
  Report Type: Spontaneous
  Country: JP (occurrence: JP)
  Receive Date: 20220307
  Receipt Date: 20220307
  Transmission Date: 20220423
  Serious: Yes (Other)
  Sender: FDA-Public Use
  Company Number: JP-NOVARTISPH-NVSJ2022JP003646

PATIENT
  Age: 36 Year
  Sex: Male

DRUGS (1)
  1. GILENYA [Suspect]
     Active Substance: FINGOLIMOD HYDROCHLORIDE
     Indication: Multiple sclerosis relapse
     Dosage: 0.5 MG
     Route: 048
     Dates: start: 201507

REACTIONS (4)
  - Urinary retention [Unknown]
  - Dysuria [Not Recovered/Not Resolved]
  - Central nervous system lesion [Unknown]
  - Neuralgia [Unknown]

NARRATIVE: CASE EVENT DATE: 20180301
